FAERS Safety Report 23508863 (Version 1)
Quarter: 2024Q1

REPORT INFORMATION
  Report Type: Report from Study
  Country: JP (occurrence: JP)
  Receive Date: 20240209
  Receipt Date: 20240209
  Transmission Date: 20240410
  Serious: Yes (Other)
  Sender: FDA-Public Use
  Company Number: JP-BIOMARINAP-JP-2024-155708

PATIENT

DRUGS (5)
  1. VOXZOGO [Suspect]
     Active Substance: VOSORITIDE
     Indication: Osteochondrodysplasia
     Dosage: UNK
     Route: 058
     Dates: start: 20230119
  2. ADCIRCA [Concomitant]
     Active Substance: TADALAFIL
     Indication: Pulmonary hypertension
     Route: 048
  3. ENALAPRIL [Concomitant]
     Active Substance: ENALAPRIL
     Indication: Hypertension
     Route: 048
  4. MONTELUKAST SODIUM [Concomitant]
     Active Substance: MONTELUKAST SODIUM
     Indication: Product used for unknown indication
  5. OXYGEN [Concomitant]
     Active Substance: OXYGEN
     Indication: Pulmonary hypertension

REACTIONS (4)
  - Influenza [Recovered/Resolved]
  - Prolonged expiration [Recovered/Resolved]
  - Oxygen saturation decreased [Recovered/Resolved]
  - Listless [Recovered/Resolved]

NARRATIVE: CASE EVENT DATE: 20231101
